FAERS Safety Report 6149566-4 (Version None)
Quarter: 2009Q2

REPORT INFORMATION
  Report Type: 
  Country: None (occurrence: None)
  Receive Date: 20090409
  Receipt Date: 20090331
  Transmission Date: 20091009
  Serious: Yes (Other)
  Sender: FDA-Public Use
  Company Number: PHHY2009NL12115

PATIENT
  Age: 38 Year
  Sex: Male

DRUGS (2)
  1. IMATINIB MESYLATE [Suspect]
     Indication: CHRONIC MYELOID LEUKAEMIA
     Dosage: 800 MG/DAY
  2. CYTARABINE [Concomitant]
     Dosage: 200 MG/M2

REACTIONS (6)
  - FATIGUE [None]
  - NIGHT SWEATS [None]
  - PRODUCTIVE COUGH [None]
  - PULMONARY CAVITATION [None]
  - PYREXIA [None]
  - TUBERCULOSIS [None]
